FAERS Safety Report 23915210 (Version 1)
Quarter: 2024Q2

REPORT INFORMATION
  Report Type: Spontaneous
  Country: IT (occurrence: IT)
  Receive Date: 20240529
  Receipt Date: 20240529
  Transmission Date: 20240716
  Serious: Yes (Other)
  Sender: FDA-Public Use
  Company Number: IT-Ascend Therapeutics US, LLC-2157533

PATIENT
  Age: 21 Year
  Sex: Female

DRUGS (2)
  1. ANDROGEL [Suspect]
     Active Substance: TESTOSTERONE
     Indication: Hormone replacement therapy
     Route: 065
  2. TESTOSTERONE [Suspect]
     Active Substance: TESTOSTERONE
     Route: 065

REACTIONS (6)
  - Syncope [Unknown]
  - Transgender hormonal therapy [Unknown]
  - Off label use [Unknown]
  - Unmasking of previously unidentified disease [Recovered/Resolved]
  - Condition aggravated [Recovered/Resolved]
  - Brugada syndrome [Recovered/Resolved]
